FAERS Safety Report 17833846 (Version 1)
Quarter: 2020Q2

REPORT INFORMATION
  Report Type: Spontaneous
  Country: DE (occurrence: DE)
  Receive Date: 20200528
  Receipt Date: 20200528
  Transmission Date: 20200714
  Serious: Yes (Other)
  Sender: FDA-Public Use
  Company Number: DE-SUN PHARMACEUTICAL INDUSTRIES LTD-2020RR-248521

PATIENT
  Age: 1 Month
  Sex: Male

DRUGS (3)
  1. LEVETIRACETAM. [Suspect]
     Active Substance: LEVETIRACETAM
     Indication: SEIZURE
     Dosage: UNK
     Route: 065
  2. EVEROLIMUS. [Suspect]
     Active Substance: EVEROLIMUS
     Indication: ASTROCYTOMA, LOW GRADE
     Dosage: 0.03 MG/M2, 2X PER DAY
     Route: 048
  3. VIGABATRIN. [Suspect]
     Active Substance: VIGABATRIN
     Indication: SEIZURE
     Dosage: UNK
     Route: 065

REACTIONS (2)
  - Urinary tract infection [Unknown]
  - Neutropenia [Recovered/Resolved]
